FAERS Safety Report 16362450 (Version 1)
Quarter: 2019Q3

REPORT INFORMATION
  Report Type: Spontaneous
  Country: US (occurrence: US)
  Receive Date: 20190526
  Receipt Date: 20190526
  Transmission Date: 20191004
  Serious: Yes (Other)
  Sender: FDA-Public Use
  Company Number: None

PATIENT
  Age: 31 Year
  Sex: Female
  Weight: 78.75 kg

DRUGS (6)
  1. CLOBETASOL [Concomitant]
     Active Substance: CLOBETASOL
  2. EUCRISA [Concomitant]
     Active Substance: CRISABOROLE
  3. DESONIDE. [Concomitant]
     Active Substance: DESONIDE
  4. DUPIXENT [Suspect]
     Active Substance: DUPILUMAB
     Indication: ECZEMA
     Dosage: ?          QUANTITY:1 INJECTION(S);OTHER FREQUENCY:EVERY 15 DAYS;?
     Route: 058
     Dates: start: 20190423, end: 20190523
  5. DUPIXENT [Suspect]
     Active Substance: DUPILUMAB
     Indication: ECZEMA
     Dosage: ?          QUANTITY:1 INJECTION(S);OTHER FREQUENCY:15 DAYS;?
     Route: 058
     Dates: start: 20190423, end: 20190523
  6. BISOVI [Concomitant]

REACTIONS (1)
  - Alopecia [None]

NARRATIVE: CASE EVENT DATE: 20190426
